FAERS Safety Report 4337486-7 (Version None)
Quarter: 2004Q2

REPORT INFORMATION
  Report Type: 
  Country: None (occurrence: None)
  Receive Date: 20040413
  Receipt Date: 20040401
  Transmission Date: 20050107
  Serious: Yes (Hospitalization)
  Sender: FDA-Public Use
  Company Number: US-BRISTOL-MYERS SQUIBB COMPANY-12548277

PATIENT
  Age: 69 Year
  Sex: Female
  Weight: 63 kg

DRUGS (3)
  1. CARBOPLATIN [Suspect]
     Indication: LARYNGEAL CANCER
     Route: 042
     Dates: start: 20031219
  2. TAXOL [Suspect]
     Indication: LARYNGEAL CANCER
     Route: 042
     Dates: start: 20031219
  3. RADIOTHERAPY [Suspect]
     Indication: LARYNGEAL CANCER
     Dates: start: 20040201

REACTIONS (10)
  - CARDIAC FAILURE CONGESTIVE [None]
  - CATHETER SITE INFECTION [None]
  - ENTEROCOCCAL INFECTION [None]
  - FISTULA [None]
  - HAEMATOCRIT DECREASED [None]
  - HAEMOGLOBIN DECREASED [None]
  - INFECTION [None]
  - NEUTROPENIA [None]
  - PNEUMONIA [None]
  - RADIATION MUCOSITIS [None]
